FAERS Safety Report 4406279-4 (Version None)
Quarter: 2004Q3

REPORT INFORMATION
  Report Type: 
  Country: None (occurrence: None)
  Receive Date: 20040723
  Receipt Date: 20030604
  Transmission Date: 20050211
  Serious: No
  Sender: FDA-Public Use
  Company Number: US-GLAXOSMITHKLINE-A0410819A

PATIENT
  Age: 51 Year
  Sex: Male

DRUGS (12)
  1. AVANDIA [Suspect]
     Dosage: 4MG PER DAY
     Route: 048
     Dates: start: 20030101
  2. LANTUS [Concomitant]
     Dosage: 46UNIT PER DAY
  3. METFORMIN HCL [Concomitant]
     Dosage: 2.5G PER DAY
  4. GLIPIZIDE [Concomitant]
     Dosage: 5MG PER DAY
  5. FLONASE [Concomitant]
  6. ZYRTEC [Concomitant]
  7. UNSPECIFIED MEDICATION [Concomitant]
  8. ACCUPRIL [Concomitant]
  9. HYDROCHLOROTHIAZIDE [Concomitant]
  10. CELEBREX [Concomitant]
  11. CLINDAMYCIN [Concomitant]
  12. HYDROCODONE [Concomitant]

REACTIONS (2)
  - CHEST PAIN [None]
  - PAIN EXACERBATED [None]
